FAERS Safety Report 25655266 (Version 1)
Quarter: 2025Q3

REPORT INFORMATION
  Report Type: Spontaneous
  Country: US (occurrence: None)
  Receive Date: 20250806
  Receipt Date: 20250806
  Transmission Date: 20251021
  Serious: Yes (Life-Threatening)
  Sender: FDA-CTU
  Company Number: None

PATIENT
  Age: 67 Year
  Sex: Female

DRUGS (1)
  1. TERIPARATIDE [Suspect]
     Active Substance: TERIPARATIDE
     Indication: Osteoporosis
     Dosage: 20 UG MICROGRAM(S) DAILY SUBCUTNEOUS
     Route: 058
     Dates: start: 20250417, end: 20250803

REACTIONS (6)
  - Chest pain [None]
  - Tinnitus [None]
  - Pain [None]
  - Discomfort [None]
  - Muscle spasms [None]
  - Pain in extremity [None]
